FAERS Safety Report 10994234 (Version 1)
Quarter: 2015Q2

REPORT INFORMATION
  Report Type: Spontaneous
  Country: US (occurrence: None)
  Receive Date: 20150403
  Receipt Date: 20150403
  Transmission Date: 20150821
  Serious: Yes (Hospitalization, Other)
  Sender: FDA-Public Use
  Company Number: CPI6860

PATIENT
  Age: 13 Month
  Sex: Female
  Weight: 8 kg

DRUGS (1)
  1. N-ACETYLCYSTEINE [Suspect]
     Active Substance: ACETYLCYSTEINE
     Indication: TOXICITY TO VARIOUS AGENTS
     Dosage: 112.5 ML/KG 3 INFUSIONS

REACTIONS (5)
  - Generalised tonic-clonic seizure [None]
  - Drug dispensing error [None]
  - Wrong technique in drug usage process [None]
  - Incorrect dose administered [None]
  - Hyponatraemia [None]

NARRATIVE: CASE EVENT DATE: 2014
